FAERS Safety Report 7138170-7 (Version None)
Quarter: 2010Q4

REPORT INFORMATION
  Report Type: 
  Country: None (occurrence: None)
  Receive Date: 20101118
  Receipt Date: 20101101
  Transmission Date: 20110411
  Serious: Yes (Death)
  Sender: FDA-Public Use
  Company Number: 2010P1002343

PATIENT
  Age: 42 Year
  Sex: Female

DRUGS (4)
  1. CITALOPRAM (NO PREF. NAME) [Suspect]
     Indication: COMPLETED SUICIDE
     Dosage: PO
     Route: 048
  2. CYPROHEPTADINE (NO PREF. NAME) [Suspect]
     Indication: COMPLETED SUICIDE
     Dosage: PO
     Route: 048
  3. CON MED [Concomitant]
  4. PREV MED [Concomitant]

REACTIONS (3)
  - ARRHYTHMIA [None]
  - COMPLETED SUICIDE [None]
  - DRUG TOXICITY [None]
